FAERS Safety Report 7020437-4 (Version None)
Quarter: 2010Q3

REPORT INFORMATION
  Report Type: 
  Country: None (occurrence: None)
  Receive Date: 20100927
  Receipt Date: 20100917
  Transmission Date: 20110219
  Serious: Yes (Death)
  Sender: FDA-Public Use
  Company Number: UTC-001460

PATIENT
  Age: 29 Year
  Sex: Female

DRUGS (2)
  1. REMODULIN [Suspect]
     Dosage: 180 UG/KG (0.125 UG/KG, 1 IN 1 MIN), SUBCUTANEOUS
     Route: 058
     Dates: start: 20060824, end: 20100707
  2. REMODULIN [Suspect]
     Dosage: 180 UG/KG (0.125 UG/KG, 1 IN 1 MIN), SUBCUTANEOUS
     Route: 058
     Dates: start: 20060824, end: 20100707

REACTIONS (1)
  - DEATH [None]
